FAERS Safety Report 19876691 (Version 1)
Quarter: 2021Q3

REPORT INFORMATION
  Report Type: Spontaneous
  Country: RU (occurrence: RU)
  Receive Date: 20210923
  Receipt Date: 20210923
  Transmission Date: 20211014
  Serious: Yes (Other)
  Sender: FDA-Public Use
  Company Number: NVSC2021RU213810

PATIENT
  Age: 19 Year
  Sex: Female

DRUGS (1)
  1. TOBREX [Suspect]
     Active Substance: TOBRAMYCIN
     Indication: CONJUNCTIVITIS
     Dosage: 2 DRP, QD
     Route: 047
     Dates: start: 20210914, end: 20210914

REACTIONS (1)
  - Angioedema [Recovering/Resolving]

NARRATIVE: CASE EVENT DATE: 20210914
